FAERS Safety Report 5815827-9 (Version None)
Quarter: 2008Q3

REPORT INFORMATION
  Report Type: 
  Country: None (occurrence: None)
  Receive Date: 20080721
  Receipt Date: 20080710
  Transmission Date: 20090109
  Serious: Yes (Hospitalization)
  Sender: FDA-Public Use
  Company Number: US-JNJFOC-20070603965

PATIENT
  Sex: Female
  Weight: 59.42 kg

DRUGS (4)
  1. ORTHO EVRA [Suspect]
     Indication: MENSTRUATION IRREGULAR
     Route: 062
  2. ORTHO EVRA [Suspect]
     Indication: OVULATION PAIN
     Route: 062
  3. ORTHO EVRA [Suspect]
     Indication: CONTRACEPTION
     Route: 062
  4. IBUPROFEN [Concomitant]

REACTIONS (19)
  - ABDOMINAL PAIN [None]
  - ARTHRALGIA [None]
  - BACK PAIN [None]
  - CHEST PAIN [None]
  - DEEP VEIN THROMBOSIS [None]
  - GAIT DISTURBANCE [None]
  - GROIN PAIN [None]
  - JOINT SWELLING [None]
  - MYALGIA [None]
  - OEDEMA PERIPHERAL [None]
  - PAIN IN EXTREMITY [None]
  - PERIPHERAL VASCULAR DISORDER [None]
  - PROTEIN S DEFICIENCY [None]
  - PULMONARY EMBOLISM [None]
  - SCIATICA [None]
  - TENDERNESS [None]
  - THROMBOPHLEBITIS [None]
  - THROMBOSIS [None]
  - VAGINAL HAEMORRHAGE [None]
